FAERS Safety Report 4579988-4 (Version None)
Quarter: 2005Q1

REPORT INFORMATION
  Report Type: 
  Country: None (occurrence: None)
  Receive Date: 20050214
  Receipt Date: 20050111
  Transmission Date: 20050727
  Serious: Yes (Hospitalization)
  Sender: FDA-Public Use
  Company Number: SE-ROCHE-392067

PATIENT
  Age: 76 Year
  Sex: Female
  Weight: 58.7 kg

DRUGS (6)
  1. CAPECITABINE [Suspect]
     Indication: COLORECTAL CANCER
     Dosage: GIVEN FROM DAYS ONE TO FOURTEEN OUT OF THREE WEEK CYCLE.
     Route: 048
     Dates: start: 20041207, end: 20050110
  2. BEVACIZUMAB [Suspect]
     Indication: COLON CANCER
     Route: 042
     Dates: start: 20041115, end: 20050120
  3. OXALIPLATIN [Suspect]
     Indication: COLORECTAL CANCER
     Route: 042
     Dates: start: 20041207, end: 20050120
  4. TRIATEC [Concomitant]
     Route: 048
     Dates: start: 19990515
  5. ASPIRIN [Concomitant]
     Route: 048
     Dates: start: 20030515
  6. LIPITOR [Concomitant]
     Route: 048

REACTIONS (2)
  - CHRONIC OBSTRUCTIVE AIRWAYS DISEASE EXACERBATED [None]
  - INFECTION [None]
